FAERS Safety Report 17900697 (Version 2)
Quarter: 2021Q2

REPORT INFORMATION
  Report Type: Spontaneous
  Country: US (occurrence: US)
  Receive Date: 20200616
  Receipt Date: 20210629
  Transmission Date: 20210717
  Serious: No
  Sender: FDA-Public Use
  Company Number: US-TEVA-2020-US-1788778

PATIENT
  Age: 73 Year
  Sex: Male

DRUGS (1)
  1. BUSPIRONE HYDROCHLORIDE. [Suspect]
     Active Substance: BUSPIRONE HYDROCHLORIDE
     Route: 065

REACTIONS (1)
  - Dizziness [Unknown]
